FAERS Safety Report 19944488 (Version 1)
Quarter: 2021Q4

REPORT INFORMATION
  Report Type: Spontaneous
  Country: US (occurrence: US)
  Receive Date: 20211010
  Receipt Date: 20211010
  Transmission Date: 20220303
  Serious: No
  Sender: FDA-Public Use
  Company Number: None

PATIENT
  Age: 54 Year
  Sex: Female
  Weight: 107.55 kg

DRUGS (13)
  1. ACTEMRA [Suspect]
     Active Substance: TOCILIZUMAB
     Indication: Rheumatoid arthritis
     Dosage: ?          QUANTITY:4 INJECTION(S);OTHER FREQUENCY:EVERY 7 DAYS;
     Route: 058
     Dates: start: 20210629, end: 20210629
  2. LASIX [Concomitant]
     Active Substance: FUROSEMIDE
  3. DEMADEX [Concomitant]
     Active Substance: TORSEMIDE
  4. LISINOPRIL [Concomitant]
     Active Substance: LISINOPRIL
  5. POTASSIUM CHLORIDE [Concomitant]
     Active Substance: POTASSIUM CHLORIDE
  6. SINGULAIR [Concomitant]
     Active Substance: MONTELUKAST SODIUM
  7. ACIPHEX [Concomitant]
     Active Substance: RABEPRAZOLE SODIUM
  8. PREDNISONE [Concomitant]
     Active Substance: PREDNISONE
  9. NEURONTIN [Concomitant]
     Active Substance: GABAPENTIN
  10. CELEBREX [Concomitant]
     Active Substance: CELECOXIB
  11. VITAMIN D [Concomitant]
     Active Substance: VITAMIN D NOS
  12. FISH OIL [Concomitant]
     Active Substance: FISH OIL
  13. MUCINEX D [Concomitant]
     Active Substance: GUAIFENESIN\PSEUDOEPHEDRINE HYDROCHLORIDE

REACTIONS (5)
  - Rhinorrhoea [None]
  - Headache [None]
  - Nasal congestion [None]
  - Anosmia [None]
  - Respiratory tract haemorrhage [None]

NARRATIVE: CASE EVENT DATE: 20210630
